FAERS Safety Report 6036069-0 (Version None)
Quarter: 2009Q1

REPORT INFORMATION
  Report Type: 
  Country: None (occurrence: None)
  Receive Date: 20090113
  Receipt Date: 20090108
  Transmission Date: 20090719
  Serious: Yes (Death, Hospitalization)
  Sender: FDA-Public Use
  Company Number: IN-ELI_LILLY_AND_COMPANY-IN200901000979

PATIENT
  Sex: Male

DRUGS (1)
  1. XIGRIS [Suspect]
     Indication: ACUTE RESPIRATORY DISTRESS SYNDROME
     Dosage: UNK, UNKNOWN
     Route: 042

REACTIONS (1)
  - SEPTIC SHOCK [None]
